FAERS Safety Report 12088040 (Version 1)
Quarter: 2016Q1

REPORT INFORMATION
  Report Type: Spontaneous
  Country: EE (occurrence: US)
  Receive Date: 20160217
  Receipt Date: 20160217
  Transmission Date: 20160526
  Serious: Yes (Death)
  Sender: FDA-Public Use
  Company Number: EE-CITRON PHARMA LLC-B16-0002-ADE

PATIENT
  Age: 57 Year
  Sex: Male

DRUGS (1)
  1. FLUDROCORTISONE ACETATE. [Suspect]
     Active Substance: FLUDROCORTISONE ACETATE
     Indication: HYPONATRAEMIA
     Dosage: 0.1 MG, BID
     Route: 048

REACTIONS (5)
  - Hyponatraemia [Fatal]
  - Small cell lung cancer [Fatal]
  - Pneumonia [Unknown]
  - Confusional state [Unknown]
  - Disorientation [Unknown]
